FAERS Safety Report 12666844 (Version 3)
Quarter: 2016Q4

REPORT INFORMATION
  Report Type: Report from Study
  Country: CA (occurrence: CA)
  Receive Date: 20160819
  Receipt Date: 20161111
  Transmission Date: 20170207
  Serious: Yes (Hospitalization, Other)
  Sender: FDA-Public Use
  Company Number: CA-AMGEN-CANSL2016073087

PATIENT
  Age: 82 Year
  Sex: Female

DRUGS (7)
  1. VITAMIN D [Concomitant]
     Active Substance: CHOLECALCIFEROL
     Dosage: 1000 IU, UNK
  2. CALCIUM [Concomitant]
     Active Substance: CALCIUM
     Dosage: UNK
  3. TYLENOL [Concomitant]
     Active Substance: ACETAMINOPHEN
     Indication: ARTHRITIS
  4. MULTIVITAMIN [Concomitant]
     Active Substance: VITAMINS
  5. PANTOPRAZOLE [Concomitant]
     Active Substance: PANTOPRAZOLE SODIUM
     Dosage: UNK
  6. IRON [Concomitant]
     Active Substance: IRON
  7. PROLIA [Suspect]
     Active Substance: DENOSUMAB
     Indication: OSTEOPOROSIS POSTMENOPAUSAL
     Dosage: 60 MG/ML, UNK
     Route: 065
     Dates: start: 20120530

REACTIONS (12)
  - Fall [Unknown]
  - Rib fracture [Unknown]
  - Adverse drug reaction [Unknown]
  - Joint swelling [Unknown]
  - Foot fracture [Unknown]
  - Cartilage injury [Unknown]
  - Tooth infection [Recovering/Resolving]
  - Atrial fibrillation [Unknown]
  - Toothache [Unknown]
  - Gingivitis [Unknown]
  - Tooth loss [Unknown]
  - Pain [Unknown]

NARRATIVE: CASE EVENT DATE: 2015
